FAERS Safety Report 17085254 (Version 1)
Quarter: 2019Q4

REPORT INFORMATION
  Report Type: Spontaneous
  Country: US (occurrence: US)
  Receive Date: 20191030
  Receipt Date: 20191030
  Transmission Date: 20200122
  Serious: No
  Sender: FDA-Public Use
  Company Number: None

PATIENT
  Age: 58 Year
  Sex: Male

DRUGS (1)
  1. LUPRON DEPOT [Suspect]
     Active Substance: LEUPROLIDE ACETATE
     Route: 030
     Dates: start: 20190121

REACTIONS (8)
  - Urticaria [None]
  - Emotional disorder [None]
  - Premenstrual syndrome [None]
  - Blood glucose decreased [None]
  - Irritability [None]
  - Breast tenderness [None]
  - Hot flush [None]
  - Insurance issue [None]

NARRATIVE: CASE EVENT DATE: 20191030
